FAERS Safety Report 7472877 (Version 4)
Quarter: 2013Q4

REPORT INFORMATION
  Report Type: Spontaneous
  Country: US (occurrence: US)
  Receive Date: 20100714
  Receipt Date: 20131202
  Transmission Date: 20140711
  Serious: Yes (Hospitalization, Other)
  Sender: FDA-Public Use
  Company Number: US-BAYER-201027364NA

PATIENT
  Age: 35 Year
  Sex: Female
  Weight: 59.09 kg

DRUGS (7)
  1. YAZ [Suspect]
     Route: 048
     Dates: start: 2003, end: 2010
  2. YASMIN [Suspect]
     Indication: CONTRACEPTION
     Route: 048
     Dates: start: 2003, end: 2010
  3. OCELLA [Suspect]
     Dosage: UNK
     Dates: start: 2009
  4. MORPHINE SULFATE [Concomitant]
  5. HYDROCODONE/ACETAMINOPHEN [Concomitant]
     Dosage: 7.5/500, 2 TABLET 4 TIMES A DAY AS NEEDED
     Route: 048
  6. SUMATRIPTAN SUCCINATE [Concomitant]
     Dosage: 100 MG, UNK
     Dates: start: 20090120
  7. CEPHALEXIN [Concomitant]
     Dosage: UNK
     Dates: start: 20090211

REACTIONS (2)
  - Gallbladder injury [Unknown]
  - Cholecystitis chronic [None]
